FAERS Safety Report 5772432-0 (Version None)
Quarter: 2008Q2

REPORT INFORMATION
  Report Type: 
  Country: None (occurrence: None)
  Receive Date: 20080613
  Receipt Date: 20080603
  Transmission Date: 20081010
  Serious: No
  Sender: FDA-Public Use
  Company Number: US-ELI_LILLY_AND_COMPANY-US200805001376

PATIENT
  Sex: Male
  Weight: 101.13 kg

DRUGS (7)
  1. BYETTA [Suspect]
     Indication: TYPE 2 DIABETES MELLITUS
     Dosage: 5 UG, 2/D
     Route: 058
     Dates: start: 20071101, end: 20071201
  2. BYETTA [Suspect]
     Dosage: 10 UG, 2/D
     Route: 058
     Dates: start: 20071202
  3. ACTOS [Concomitant]
     Dosage: UNK, UNKNOWN
  4. GLUCOTROL [Concomitant]
     Dosage: UNK, UNKNOWN
  5. METFORMIN [Concomitant]
     Indication: TYPE 2 DIABETES MELLITUS
     Dosage: 1000 MG, 2/D
     Dates: start: 20071101
  6. GLIMEPIRIDE [Concomitant]
     Indication: TYPE 2 DIABETES MELLITUS
     Dosage: 4 MG, 2/D
     Dates: end: 20071101
  7. GLIMEPIRIDE [Concomitant]
     Dosage: 2 MG, 2/D
     Dates: start: 20071101

REACTIONS (8)
  - ACCIDENTAL OVERDOSE [None]
  - ANGER [None]
  - ANXIETY [None]
  - BLOOD GLUCOSE INCREASED [None]
  - LUMBAR SPINAL STENOSIS [None]
  - NAUSEA [None]
  - ROAD TRAFFIC ACCIDENT [None]
  - WEIGHT DECREASED [None]
